FAERS Safety Report 19360110 (Version 2)
Quarter: 2021Q4

REPORT INFORMATION
  Report Type: Report from Study
  Country: CN (occurrence: CN)
  Receive Date: 20210602
  Receipt Date: 20211118
  Transmission Date: 20220303
  Serious: Yes (Hospitalization, Other)
  Sender: FDA-Public Use
  Company Number: CN-NOVARTISPH-NVSC2019CN046922

PATIENT
  Age: 71 Year
  Sex: Male
  Weight: 59 kg

DRUGS (8)
  1. ENTRESTO [Suspect]
     Active Substance: SACUBITRIL\VALSARTAN
     Indication: Cardiac failure
     Dosage: 100 MG, BID
     Route: 048
     Dates: start: 20191108, end: 20201113
  2. CEFTRIAXONE SODIUM [Concomitant]
     Active Substance: CEFTRIAXONE SODIUM
     Indication: Infection prophylaxis
     Dosage: 1 G, Q12H
     Route: 065
     Dates: start: 20191107, end: 20191122
  3. ASPIRIN [Concomitant]
     Active Substance: ASPIRIN
     Indication: Blood thrombin
     Dosage: 100 MG, UNKNOWN
     Route: 065
     Dates: start: 20210109, end: 20210113
  4. FUROSEMIDE [Concomitant]
     Active Substance: FUROSEMIDE
     Indication: Cardiac failure
     Dosage: 20 MG, UNKNOWN
     Route: 065
     Dates: start: 20210109, end: 20210113
  5. TICAGRELOR [Concomitant]
     Active Substance: TICAGRELOR
     Indication: Product used for unknown indication
     Dosage: 90 MG, UNKNOWN
     Route: 065
     Dates: start: 20210109, end: 20210113
  6. DIAZEPAM [Concomitant]
     Active Substance: DIAZEPAM
     Indication: Sedation
     Dosage: 2.5 MG, UNKNOWN
     Route: 065
     Dates: start: 20210109, end: 20210113
  7. PANTOPRAZOLE SODIUM [Concomitant]
     Active Substance: PANTOPRAZOLE SODIUM
     Indication: Prophylaxis
     Dosage: 40 MG, UNKNOWN
     Route: 065
     Dates: start: 20210109, end: 20210113
  8. METOPROLOL SUCCINATE [Concomitant]
     Active Substance: METOPROLOL SUCCINATE
     Indication: Cardiac failure
     Dosage: 47.5 MG, UNKNOWN
     Route: 065
     Dates: start: 20210109, end: 20210113

REACTIONS (9)
  - Myocardial infarction [Recovering/Resolving]
  - Mitral valve incompetence [Unknown]
  - Carotid artery disease [Unknown]
  - Tricuspid valve incompetence [Unknown]
  - Aortic arteriosclerosis [Unknown]
  - Arteriosclerosis [Unknown]
  - Left ventricular enlargement [Unknown]
  - Left ventricular end-diastolic pressure decreased [Unknown]
  - Chronic obstructive pulmonary disease [Recovering/Resolving]

NARRATIVE: CASE EVENT DATE: 20201109
